FAERS Safety Report 5019894-4 (Version None)
Quarter: 2006Q2

REPORT INFORMATION
  Report Type: 
  Country: None (occurrence: None)
  Receive Date: 20060605
  Receipt Date: 20060605
  Transmission Date: 20061013
  Serious: Yes (Hospitalization)
  Sender: FDA-Public Use
  Company Number: None

PATIENT
  Age: 83 Year
  Sex: Male
  Weight: 82 kg

DRUGS (1)
  1. MOXIFLOXACIN  400 MG [Suspect]
     Indication: INFECTION
     Dosage: 400 MG DAILY PO
     Route: 048
     Dates: start: 20060603, end: 20060604

REACTIONS (2)
  - BLOOD GLUCOSE DECREASED [None]
  - TOE AMPUTATION [None]
